FAERS Safety Report 21272595 (Version 2)
Quarter: 2022Q3

REPORT INFORMATION
  Report Type: Spontaneous
  Country: US (occurrence: US)
  Receive Date: 20220830
  Receipt Date: 20220926
  Transmission Date: 20221027
  Serious: No
  Sender: FDA-Public Use
  Company Number: US-ELI_LILLY_AND_COMPANY-US202208014489

PATIENT
  Sex: Female

DRUGS (1)
  1. FORTEO [Suspect]
     Active Substance: TERIPARATIDE
     Indication: Osteoporosis
     Dosage: UNK UNK, UNKNOWN
     Route: 065

REACTIONS (9)
  - Illness [Unknown]
  - Paraesthesia oral [Unknown]
  - Oropharyngeal discomfort [Unknown]
  - Intellectual disability [Unknown]
  - Palpitations [Unknown]
  - Tremor [Unknown]
  - Blood pressure abnormal [Unknown]
  - Chest discomfort [Unknown]
  - Headache [Unknown]
